FAERS Safety Report 20697331 (Version 1)
Quarter: 2022Q2

REPORT INFORMATION
  Report Type: Spontaneous
  Country: US (occurrence: US)
  Receive Date: 20220411
  Receipt Date: 20220411
  Transmission Date: 20220721
  Serious: No
  Sender: FDA-Public Use
  Company Number: US-PFIZER INC-202100999303

PATIENT
  Age: 53 Year
  Sex: Female
  Weight: 118.39 kg

DRUGS (1)
  1. CHANTIX [Suspect]
     Active Substance: VARENICLINE TARTRATE
     Indication: Smoking cessation therapy
     Dosage: 0.5 MG, 1X/DAY,0.5MG, TOOK IT ONCE PER DAY BY MOUTH
     Route: 048
     Dates: start: 2020, end: 202012

REACTIONS (5)
  - Aphonia [Not Recovered/Not Resolved]
  - Weight increased [Unknown]
  - Weight abnormal [Unknown]
  - Abdominal distension [Unknown]
  - Recalled product administered [Unknown]

NARRATIVE: CASE EVENT DATE: 20210101
